FAERS Safety Report 24612343 (Version 3)
Quarter: 2025Q1

REPORT INFORMATION
  Report Type: Report from Study
  Country: US (occurrence: US)
  Receive Date: 20241113
  Receipt Date: 20250312
  Transmission Date: 20250409
  Serious: Yes (Other)
  Sender: INSMED
  Company Number: US-INSMED-2024-00448-USAA

PATIENT
  Sex: Female

DRUGS (4)
  1. ARIKAYCE [Suspect]
     Active Substance: AMIKACIN
     Indication: Mycobacterium avium complex infection
     Dosage: 590 MILLIGRAM, QD
     Route: 055
     Dates: start: 20231113, end: 20240122
  2. ARIKAYCE [Suspect]
     Active Substance: AMIKACIN
     Dosage: 590 MILLIGRAM, TIW
     Route: 055
     Dates: start: 20240122, end: 2024
  3. ARIKAYCE [Suspect]
     Active Substance: AMIKACIN
     Route: 055
     Dates: start: 20240913, end: 2024
  4. ARIKAYCE [Suspect]
     Active Substance: AMIKACIN
     Route: 055
     Dates: start: 2024, end: 202412

REACTIONS (8)
  - Mycobacterium abscessus infection [Recovered/Resolved]
  - Renal disorder [Recovered/Resolved]
  - Renal disorder [Not Recovered/Not Resolved]
  - Liver function test abnormal [Unknown]
  - White blood cell count decreased [Unknown]
  - Renal impairment [Recovered/Resolved]
  - Unevaluable event [Unknown]
  - Therapy interrupted [Unknown]

NARRATIVE: CASE EVENT DATE: 20240101
